FAERS Safety Report 14089553 (Version 1)
Quarter: 2017Q4

REPORT INFORMATION
  Report Type: Spontaneous
  Country: US (occurrence: US)
  Receive Date: 20171014
  Receipt Date: 20171014
  Transmission Date: 20180321
  Serious: No
  Sender: FDA-Public Use
  Company Number: US-SA-2017SA162901

PATIENT
  Sex: Female

DRUGS (1)
  1. AUBAGIO [Suspect]
     Active Substance: TERIFLUNOMIDE
     Indication: MULTIPLE SCLEROSIS
     Route: 048
     Dates: start: 20170726

REACTIONS (6)
  - Abdominal pain [Recovering/Resolving]
  - Aspartate aminotransferase increased [Recovering/Resolving]
  - Tenderness [Recovering/Resolving]
  - Gastrointestinal disorder [Recovering/Resolving]
  - Eosinophilia [Recovering/Resolving]
  - Alanine aminotransferase increased [Recovering/Resolving]

NARRATIVE: CASE EVENT DATE: 20170814
